FAERS Safety Report 16192675 (Version 3)
Quarter: 2019Q2

REPORT INFORMATION
  Report Type: Spontaneous
  Country: US (occurrence: US)
  Receive Date: 20190412
  Receipt Date: 20190510
  Transmission Date: 20190711
  Serious: Yes (Hospitalization, Other)
  Sender: FDA-Public Use
  Company Number: US-ASTRAZENECA-2019SE54763

PATIENT
  Sex: Male
  Weight: 85.4 kg

DRUGS (3)
  1. LISINOPRIL. [Suspect]
     Active Substance: LISINOPRIL
     Route: 048
  2. IMFINZI [Suspect]
     Active Substance: DURVALUMAB
     Indication: LUNG NEOPLASM MALIGNANT
     Dosage: 10.0MG/KG UNKNOWN
     Route: 042
     Dates: start: 20190214
  3. METOPROLOL SUCCINATE. [Suspect]
     Active Substance: METOPROLOL SUCCINATE
     Route: 048

REACTIONS (14)
  - Acute kidney injury [Unknown]
  - Hypophagia [Unknown]
  - Weight decreased [Unknown]
  - Diabetic ketoacidosis [Recovering/Resolving]
  - Dry mouth [Unknown]
  - Dehydration [Unknown]
  - Type 1 diabetes mellitus [Unknown]
  - Myocardial ischaemia [Unknown]
  - Dysphagia [Unknown]
  - Atrial fibrillation [Unknown]
  - Squamous cell carcinoma of lung [Unknown]
  - Respiratory tract infection [Unknown]
  - Pulmonary embolism [Unknown]
  - Candida infection [Unknown]
